FAERS Safety Report 5065140-5 (Version None)
Quarter: 2006Q3

REPORT INFORMATION
  Report Type: 
  Country: None (occurrence: None)
  Receive Date: 20060725
  Receipt Date: 20060706
  Transmission Date: 20061208
  Serious: Yes (Hospitalization, Other)
  Sender: FDA-Public Use
  Company Number: CA200606004153

PATIENT
  Age: 65 Year
  Sex: Female

DRUGS (13)
  1. FORTEO [Suspect]
     Indication: OSTEOPOROSIS
     Dosage: 20  UG, DAILY (1/D)
     Dates: start: 20060501
  2. FORTEO [Concomitant]
  3. PREDNISONE TAB [Concomitant]
  4. HYDROXYQUINOLINE (HYDROXYQUINOLINE) [Concomitant]
  5. METHOTREXATE [Concomitant]
  6. IRON (IRON) [Concomitant]
  7. CALCIUM (CALCIUM) [Concomitant]
  8. VITAMIN B COMPLEX CAP [Concomitant]
  9. ASCORBIC ACID [Concomitant]
  10. VITAMIN D NOS (VITAMIN D NOS) [Concomitant]
  11. MINERALS NOS (MINERALS NOS) [Concomitant]
  12. GLUCOSAMINE SULFATE (GLUCOSAMINE SULFATE) [Concomitant]
  13. ACETAMINOPHEN [Concomitant]

REACTIONS (7)
  - ANOREXIA [None]
  - CONDITION AGGRAVATED [None]
  - DYSPNOEA [None]
  - GINGIVAL PAIN [None]
  - HOT FLUSH [None]
  - SYSTEMIC LUPUS ERYTHEMATOSUS [None]
  - TOOTHACHE [None]
